FAERS Safety Report 6819543-6 (Version None)
Quarter: 2010Q3

REPORT INFORMATION
  Report Type: 
  Country: None (occurrence: None)
  Receive Date: 20100707
  Receipt Date: 20100628
  Transmission Date: 20110219
  Serious: Yes (Other)
  Sender: FDA-Public Use
  Company Number: US-BRACCO-004468

PATIENT
  Sex: Male

DRUGS (40)
  1. CONTRAST MEDIA [Suspect]
     Indication: NUCLEAR MAGNETIC RESONANCE IMAGING
     Dates: start: 20040519, end: 20040519
  2. PROHANCE [Suspect]
     Indication: SCAN BRAIN
     Dates: start: 20040519, end: 20040519
  3. MAGNEVIST [Suspect]
     Indication: NUCLEAR MAGNETIC RESONANCE IMAGING
     Dates: start: 20061017, end: 20061017
  4. MAGNEVIST [Suspect]
     Dates: start: 20060519, end: 20060519
  5. MAGNEVIST [Suspect]
     Indication: NUCLEAR MAGNETIC RESONANCE IMAGING BRAIN
     Dates: start: 20061013, end: 20061013
  6. OMNISCAN [Suspect]
     Indication: FISTULOGRAM
     Route: 042
     Dates: start: 20060804, end: 20060804
  7. OMNISCAN [Suspect]
     Indication: NUCLEAR MAGNETIC RESONANCE IMAGING
     Route: 042
     Dates: start: 20060805, end: 20060805
  8. LYRICA [Concomitant]
  9. ARANESP [Concomitant]
  10. FERROUS SULFATE [Concomitant]
     Dates: start: 20060812
  11. SYNTHROID [Concomitant]
  12. PROCRIT [Concomitant]
  13. SEVELAMER [Concomitant]
  14. K-DUR [Concomitant]
  15. TRENTAL [Concomitant]
  16. ATENOLOL [Concomitant]
  17. VENOFER [Concomitant]
     Route: 042
     Dates: start: 20061016
  18. CLONIDINE [Concomitant]
  19. PROCARDIA XL [Concomitant]
  20. LIPITOR [Concomitant]
  21. COREG [Concomitant]
  22. LANTUS [Concomitant]
  23. ACTOS [Concomitant]
  24. ZYVOX [Concomitant]
  25. VANCOMYCIN [Concomitant]
  26. STARLIX [Concomitant]
  27. ACCUPRIL [Concomitant]
  28. COUMADIN [Concomitant]
  29. LASIX [Concomitant]
  30. LAMISIL [Concomitant]
  31. PRINIVIL [Concomitant]
  32. AVELOX [Concomitant]
  33. ALL OTHER THERAPEUTIC PRODUCTS [Concomitant]
  34. EPOGEN [Concomitant]
  35. NATEGLINIDE [Concomitant]
  36. PERCOCET [Concomitant]
  37. AMITRIPTYLINE [Concomitant]
  38. BENADRYL [Concomitant]
  39. LOPID [Concomitant]
  40. NORVASC [Concomitant]
     Route: 048

REACTIONS (1)
  - NEPHROGENIC SYSTEMIC FIBROSIS [None]
